FAERS Safety Report 8888298 (Version 1)
Quarter: 2012Q4

REPORT INFORMATION
  Report Type: 
  Country: US (occurrence: US)
  Receive Date: 20121106
  Receipt Date: 20121106
  Transmission Date: 20130627
  Serious: No
  Sender: FDA-Public Use
  Company Number: US-PFIZER INC-2012273276

PATIENT
  Age: 55 Year
  Sex: Female
  Weight: 109 kg

DRUGS (5)
  1. NORVASC [Suspect]
     Indication: BLOOD PRESSURE HIGH
     Dosage: 20 mg, daily
     Dates: start: 2008
  2. LYRICA [Suspect]
     Indication: JOINT DISORDER
     Dosage: 100 mg, daily
     Dates: start: 2011
  3. ACETAMINOPHEN/DIPHENHYDRAMINE/PHENYLEPHRINE [Concomitant]
     Indication: SINUS DISORDER
     Dosage: UNK, as needed
  4. ALEVE [Concomitant]
     Indication: SINUS DISORDER
     Dosage: UNK, as needed
  5. PSEUDOEPHEDRINE [Concomitant]
     Indication: SINUS DISORDER
     Dosage: UNK, as needed

REACTIONS (2)
  - Off label use [Unknown]
  - Sinus headache [Not Recovered/Not Resolved]
